FAERS Safety Report 21890487 (Version 1)
Quarter: 2023Q1

REPORT INFORMATION
  Report Type: Spontaneous
  Country: BE (occurrence: BE)
  Receive Date: 20230120
  Receipt Date: 20230120
  Transmission Date: 20230418
  Serious: Yes (Death, Other)
  Sender: FDA-Public Use
  Company Number: BE-PFIZER INC-PV202300011292

PATIENT
  Age: 74 Year
  Sex: Male

DRUGS (26)
  1. RITUXIMAB [Suspect]
     Active Substance: RITUXIMAB
     Indication: Diffuse large B-cell lymphoma
     Dosage: UNK
  2. RITUXIMAB [Suspect]
     Active Substance: RITUXIMAB
     Indication: Hypergammaglobulinaemia benign monoclonal
     Dosage: UNK (MONOTHERAPY, ADMINISTERED TWICE)
  3. RITUXIMAB [Suspect]
     Active Substance: RITUXIMAB
     Indication: Chronic leukaemia
  4. DOXORUBICIN HYDROCHLORIDE [Suspect]
     Active Substance: DOXORUBICIN HYDROCHLORIDE
     Indication: Chronic leukaemia
     Dosage: UNK
  5. DOXORUBICIN HYDROCHLORIDE [Suspect]
     Active Substance: DOXORUBICIN HYDROCHLORIDE
     Indication: Hypergammaglobulinaemia benign monoclonal
  6. DOXORUBICIN HYDROCHLORIDE [Suspect]
     Active Substance: DOXORUBICIN HYDROCHLORIDE
     Indication: Diffuse large B-cell lymphoma
  7. METHOTREXATE SODIUM [Suspect]
     Active Substance: METHOTREXATE SODIUM
     Indication: Diffuse large B-cell lymphoma
     Dosage: UNK (ADMINISTERED THREE TIMES)
     Route: 037
  8. METHOTREXATE SODIUM [Suspect]
     Active Substance: METHOTREXATE SODIUM
     Indication: Hypergammaglobulinaemia benign monoclonal
  9. METHOTREXATE SODIUM [Suspect]
     Active Substance: METHOTREXATE SODIUM
     Indication: Chronic leukaemia
  10. CYTARABINE [Suspect]
     Active Substance: CYTARABINE
     Indication: Diffuse large B-cell lymphoma
     Dosage: UNK (ADMINISTERED THREE TIMES)
  11. CYTARABINE [Suspect]
     Active Substance: CYTARABINE
     Indication: Hypergammaglobulinaemia benign monoclonal
  12. CYTARABINE [Suspect]
     Active Substance: CYTARABINE
     Indication: Chronic leukaemia
  13. HYDROCORTISONE [Suspect]
     Active Substance: HYDROCORTISONE
     Indication: Diffuse large B-cell lymphoma
     Dosage: UNK (ADMINISTERED THREE TIMES)
  14. HYDROCORTISONE [Suspect]
     Active Substance: HYDROCORTISONE
     Indication: Hypergammaglobulinaemia benign monoclonal
  15. HYDROCORTISONE [Suspect]
     Active Substance: HYDROCORTISONE
     Indication: Chronic leukaemia
  16. CYCLOPHOSPHAMIDE [Suspect]
     Active Substance: CYCLOPHOSPHAMIDE
     Indication: Diffuse large B-cell lymphoma
     Dosage: UNK
  17. CYCLOPHOSPHAMIDE [Suspect]
     Active Substance: CYCLOPHOSPHAMIDE
     Indication: Hypergammaglobulinaemia benign monoclonal
  18. CYCLOPHOSPHAMIDE [Suspect]
     Active Substance: CYCLOPHOSPHAMIDE
     Indication: Chronic leukaemia
  19. VINCRISTINE [Suspect]
     Active Substance: VINCRISTINE
     Indication: Chronic leukaemia
     Dosage: UNK
  20. VINCRISTINE [Suspect]
     Active Substance: VINCRISTINE
     Indication: Hypergammaglobulinaemia benign monoclonal
  21. VINCRISTINE [Suspect]
     Active Substance: VINCRISTINE
     Indication: Diffuse large B-cell lymphoma
  22. PREDNISONE [Suspect]
     Active Substance: PREDNISONE
     Indication: Diffuse large B-cell lymphoma
     Dosage: UNK
  23. PREDNISONE [Suspect]
     Active Substance: PREDNISONE
     Indication: Hypergammaglobulinaemia benign monoclonal
  24. PREDNISONE [Suspect]
     Active Substance: PREDNISONE
     Indication: Chronic leukaemia
  25. NEBIVOLOL [Concomitant]
     Active Substance: NEBIVOLOL
     Dosage: 2.5 MG, DAILY
  26. ALTHIAZIDE\SPIRONOLACTONE [Concomitant]
     Active Substance: ALTHIAZIDE\SPIRONOLACTONE
     Dosage: 12.5 MG/7.5 MG QD

REACTIONS (2)
  - Drug ineffective for unapproved indication [Fatal]
  - Off label use [Fatal]
